FAERS Safety Report 5073017-4 (Version None)
Quarter: 2006Q3

REPORT INFORMATION
  Report Type: 
  Country: None (occurrence: None)
  Receive Date: 20060802
  Receipt Date: 20060721
  Transmission Date: 20061208
  Serious: Yes (Disabling, Other)
  Sender: FDA-Public Use
  Company Number: 2006090918

PATIENT
  Sex: Female

DRUGS (1)
  1. ZARONTIN [Suspect]
     Indication: CONVULSION
     Dosage: ORAL
     Route: 048

REACTIONS (5)
  - CONVULSION [None]
  - FALL [None]
  - HEAD INJURY [None]
  - SKIN LACERATION [None]
  - UPPER LIMB FRACTURE [None]
